FAERS Safety Report 8616309-1 (Version None)
Quarter: 2012Q3

REPORT INFORMATION
  Report Type: 
  Country: None (occurrence: None)
  Receive Date: 20120823
  Receipt Date: 20120605
  Transmission Date: 20120928
  Serious: No
  Sender: FDA-Public Use
  Company Number: US-MYLANLABS-2012S1011655

PATIENT
  Age: 53 Year
  Sex: Female

DRUGS (4)
  1. FLEXERIL [Concomitant]
     Route: 048
  2. VIVELLE-DOT [Concomitant]
     Indication: HORMONE REPLACEMENT THERAPY
     Route: 062
  3. AMBIEN [Concomitant]
     Indication: INSOMNIA
     Route: 048
  4. SUMATRIPTAN SUCCINATE [Suspect]
     Indication: MIGRAINE
     Route: 048
     Dates: start: 20120301

REACTIONS (2)
  - MIGRAINE [None]
  - DRUG INEFFECTIVE [None]
